FAERS Safety Report 22079071 (Version 1)
Quarter: 2023Q1

REPORT INFORMATION
  Report Type: Spontaneous
  Country: US (occurrence: None)
  Receive Date: 20230309
  Receipt Date: 20230309
  Transmission Date: 20230418
  Serious: Yes (Hospitalization)
  Sender: FDA-Public Use
  Company Number: None

PATIENT
  Age: 21 Year
  Sex: Female
  Weight: 134.55 kg

DRUGS (1)
  1. WEGOVY [Suspect]
     Active Substance: SEMAGLUTIDE
     Dosage: OTHER STRENGTH : INJECTION;?
     Dates: start: 20230208, end: 20230222

REACTIONS (8)
  - Injection related reaction [None]
  - Pain [None]
  - Hyperhidrosis [None]
  - Nausea [None]
  - Vomiting [None]
  - Abdominal pain upper [None]
  - Dehydration [None]
  - Therapy change [None]

NARRATIVE: CASE EVENT DATE: 20230208
